FAERS Safety Report 9818870 (Version 1)
Quarter: 2014Q1

REPORT INFORMATION
  Report Type: Spontaneous
  Country: AU (occurrence: AU)
  Receive Date: 20140115
  Receipt Date: 20140115
  Transmission Date: 20141002
  Serious: Yes (Disabling, Congenital Anomaly, Other)
  Sender: FDA-Public Use
  Company Number: AU-B.I. PHARMACEUTICALS,INC./RIDGEFIELD-2014-BI-01243GD

PATIENT
  Sex: Male
  Weight: 2.65 kg

DRUGS (12)
  1. PARACETAMOL [Suspect]
     Indication: EXPOSURE DURING PREGNANCY
     Route: 064
  2. RANITIDINE [Suspect]
     Indication: EXPOSURE DURING PREGNANCY
     Route: 064
  3. AMOXICILLIN [Suspect]
     Indication: EXPOSURE DURING PREGNANCY
     Route: 064
  4. ENOXAPARIN [Suspect]
     Indication: EXPOSURE DURING PREGNANCY
     Route: 064
  5. SODIUM HEPARIN [Suspect]
     Indication: EXPOSURE DURING PREGNANCY
     Route: 064
  6. NARCOTICS [Suspect]
     Indication: EXPOSURE DURING PREGNANCY
     Route: 064
  7. FLUCONAZOLE [Suspect]
     Indication: EXPOSURE DURING PREGNANCY
     Route: 064
  8. CEPHALEXIN [Suspect]
     Indication: EXPOSURE DURING PREGNANCY
     Route: 064
  9. AMPICILLIN [Suspect]
     Indication: EXPOSURE DURING PREGNANCY
     Route: 064
  10. CEFTRIAXONE [Suspect]
     Indication: EXPOSURE DURING PREGNANCY
     Route: 064
  11. MEROPENEM [Suspect]
     Indication: EXPOSURE DURING PREGNANCY
     Route: 064
  12. GENTAMICIN [Suspect]
     Indication: EXPOSURE DURING PREGNANCY
     Route: 064

REACTIONS (4)
  - Congenital multiplex arthrogryposis [Unknown]
  - Cerebral palsy [Unknown]
  - Deafness [Unknown]
  - Otitis media [Unknown]
